FAERS Safety Report 5801910-0 (Version None)
Quarter: 2008Q3

REPORT INFORMATION
  Report Type: 
  Country: None (occurrence: None)
  Receive Date: 20080707
  Receipt Date: 20080624
  Transmission Date: 20090109
  Serious: Yes (Other)
  Sender: FDA-Public Use
  Company Number: GR-ELI_LILLY_AND_COMPANY-GR200806005252

PATIENT
  Age: 41 Year
  Sex: Female

DRUGS (2)
  1. EVISTA [Suspect]
     Indication: OSTEOPENIA
     Dosage: 60 MG, DAILY (1/D)
     Route: 048
  2. CALCIUM [Concomitant]
     Indication: OSTEOPENIA
     Dosage: UNK, UNK

REACTIONS (1)
  - MENOPAUSAL SYMPTOMS [None]
